FAERS Safety Report 8239466-8 (Version None)
Quarter: 2012Q1

REPORT INFORMATION
  Report Type: 
  Country: None (occurrence: None)
  Receive Date: 20120328
  Receipt Date: 20120322
  Transmission Date: 20120608
  Serious: Yes (Other)
  Sender: FDA-Public Use
  Company Number: CN-US-EMD SERONO, INC.-7120705

PATIENT
  Sex: Female
  Weight: 47 kg

DRUGS (2)
  1. GONAL-F [Suspect]
     Indication: IN VITRO FERTILISATION
     Route: 058
     Dates: start: 20100928, end: 20101009
  2. LUVERIS [Suspect]
     Indication: IN VITRO FERTILISATION
     Dates: start: 20101004, end: 20101009

REACTIONS (1)
  - STILLBIRTH [None]
